FAERS Safety Report 23277382 (Version 3)
Quarter: 2024Q1

REPORT INFORMATION
  Report Type: Report from Study
  Country: CA (occurrence: CA)
  Receive Date: 20231208
  Receipt Date: 20240118
  Transmission Date: 20240410
  Serious: Yes (Death)
  Sender: FDA-Public Use
  Company Number: CA-TAIHOP-2023-008473

PATIENT
  Age: 54 Year
  Sex: Male

DRUGS (2)
  1. LONSURF [Suspect]
     Active Substance: TIPIRACIL HYDROCHLORIDE\TRIFLURIDINE
     Indication: Colorectal cancer metastatic
     Dosage: CYCLE 1 STARTED 05/OCT/2023; CURRENT CYCLE UNKNOWN
     Route: 048
     Dates: start: 20231005
  2. ZOFRAN [Concomitant]
     Active Substance: ONDANSETRON HYDROCHLORIDE
     Indication: Product used for unknown indication

REACTIONS (7)
  - Disease progression [Fatal]
  - Limb discomfort [Unknown]
  - Device related infection [Unknown]
  - Radiation injury [Not Recovered/Not Resolved]
  - Illness [Unknown]
  - General physical health deterioration [Unknown]
  - Asthenia [Unknown]
